FAERS Safety Report 9238241 (Version 6)
Quarter: 2013Q4

REPORT INFORMATION
  Report Type: Spontaneous
  Country: DK (occurrence: DK)
  Receive Date: 20130418
  Receipt Date: 20131209
  Transmission Date: 20140711
  Serious: Yes (Hospitalization)
  Sender: FDA-Public Use
  Company Number: DK-JNJFOC-20130406118

PATIENT
  Age: 19 Year
  Sex: Female

DRUGS (3)
  1. REMICADE [Suspect]
     Indication: COLITIS ULCERATIVE
     Dosage: 4TH TREATMENT
     Route: 042
     Dates: start: 20121207, end: 20130314
  2. IMUREL [Suspect]
     Indication: COLITIS ULCERATIVE
     Route: 065
     Dates: start: 20050101, end: 20130401
  3. CONTRACEPTIVES NOS [Concomitant]
     Indication: CONTRACEPTION
     Route: 065

REACTIONS (4)
  - Pulmonary fibrosis [Recovered/Resolved]
  - Respiratory disorder [Recovered/Resolved]
  - Dyspnoea [Recovered/Resolved]
  - Alveolitis allergic [Recovered/Resolved]
